FAERS Safety Report 24456888 (Version 1)
Quarter: 2024Q4

REPORT INFORMATION
  Report Type: Report from Study
  Country: CO (occurrence: CO)
  Receive Date: 20241018
  Receipt Date: 20241018
  Transmission Date: 20250114
  Serious: Yes (Other)
  Sender: ABBVIE
  Company Number: CO-ABBVIE-5963909

PATIENT
  Age: 50 Year
  Sex: Male
  Weight: 62 kg

DRUGS (4)
  1. VENCLEXTA [Suspect]
     Active Substance: VENETOCLAX
     Indication: Acute myeloid leukaemia
     Route: 048
     Dates: start: 20240418, end: 20240729
  2. IRINOTECAN [Concomitant]
     Active Substance: IRINOTECAN
     Indication: Product used for unknown indication
     Route: 058
     Dates: start: 2024, end: 202408
  3. DACARBAZINE [Concomitant]
     Active Substance: DACARBAZINE
     Indication: Product used for unknown indication
     Route: 058
     Dates: start: 2024, end: 202408
  4. OXALIPLATIN [Concomitant]
     Active Substance: OXALIPLATIN
     Indication: Product used for unknown indication
     Route: 058
     Dates: start: 2024, end: 202408

REACTIONS (2)
  - Appendix disorder [Recovered/Resolved]
  - Oropharyngeal plaque [Recovering/Resolving]

NARRATIVE: CASE EVENT DATE: 20240801
